FAERS Safety Report 13737190 (Version 1)
Quarter: 2017Q3

REPORT INFORMATION
  Report Type: Spontaneous
  Country: US (occurrence: US)
  Receive Date: 20170710
  Receipt Date: 20170710
  Transmission Date: 20171127
  Serious: No
  Sender: FDA-Public Use
  Company Number: US-SAOL THERAPEUTICS-2016SAO00060

PATIENT
  Sex: Male
  Weight: 149.66 kg

DRUGS (5)
  1. HYDROCHLOROTHIAZIDE. [Concomitant]
     Active Substance: HYDROCHLOROTHIAZIDE
  2. LIORESAL [Suspect]
     Active Substance: BACLOFEN
     Indication: MUSCLE SPASTICITY
     Dosage: UNK
     Dates: start: 1998
  3. NEXIUM [Concomitant]
     Active Substance: ESOMEPRAZOLE MAGNESIUM
  4. LIORESAL [Suspect]
     Active Substance: BACLOFEN
     Dosage: 869.2 ?G, \DAY
     Route: 037
  5. ELIQUIS [Concomitant]
     Active Substance: APIXABAN

REACTIONS (3)
  - Fall [Recovered/Resolved]
  - Muscle spasticity [Not Recovered/Not Resolved]
  - Therapy non-responder [Unknown]

NARRATIVE: CASE EVENT DATE: 2016
